FAERS Safety Report 8256282-1 (Version None)
Quarter: 2012Q2

REPORT INFORMATION
  Report Type: 
  Country: None (occurrence: None)
  Receive Date: 20120403
  Receipt Date: 20120401
  Transmission Date: 20120825
  Serious: Yes (Death, Other)
  Sender: FDA-Public Use
  Company Number: US-ROXANE LABORATORIES, INC.-2011-RO-00273RO

PATIENT
  Sex: Male
  Weight: 49 kg

DRUGS (4)
  1. MORPHINE [Suspect]
  2. METHADONE HCL [Suspect]
     Dosage: 10 MG
  3. SOMA [Suspect]
  4. IBUPROFEN [Suspect]

REACTIONS (3)
  - DRUG SCREEN POSITIVE [None]
  - TOXICITY TO VARIOUS AGENTS [None]
  - DRUG DIVERSION [None]
